FAERS Safety Report 7517964-X (Version None)
Quarter: 2011Q2

REPORT INFORMATION
  Report Type: 
  Country: None (occurrence: None)
  Receive Date: 20110523
  Receipt Date: 20110511
  Transmission Date: 20111010
  Serious: Yes (Hospitalization)
  Sender: FDA-Public Use
  Company Number: TRP_07741_2011

PATIENT
  Sex: Female
  Weight: 79.3795 kg

DRUGS (21)
  1. ACETAMINOPHEN W/ PROPOXYPHENE HCL [Concomitant]
  2. LOPERAMIDE HYDROCHLORIDE [Concomitant]
  3. HYDROCORTISONE ACETATE [Concomitant]
  4. ABT-072 (BLINDED) (ABT-072) [Suspect]
     Indication: HEPATITIS C
     Dosage: (ORAL)
     Route: 048
     Dates: start: 20100831, end: 20100906
  5. ABT-072 (BLINDED) (ABT-072) [Suspect]
     Indication: HEPATITIS C
     Dosage: (ORAL)
     Route: 048
     Dates: start: 20100614, end: 20100626
  6. HYPROMELLOSE [Concomitant]
  7. ALPRAZOLAM [Concomitant]
  8. HYDROCHLOROTHIAZIDE [Concomitant]
  9. MILK THISTLE [Concomitant]
  10. LISINOPRIL [Concomitant]
  11. SERTRALINE HYDROCHLORIDE [Concomitant]
  12. VICODIN [Concomitant]
  13. CYCLOBENZAPRINE HYDROCHLORIDE [Concomitant]
  14. PEGINTERFERON ALFA-2A [Suspect]
     Indication: HEPATITIS C
     Dosage: (180 ?G 1X/WEEK SUBCUTANEOUS)
     Route: 058
     Dates: start: 20100617, end: 20101210
  15. LEVOTHYROXINE SODIUM [Concomitant]
  16. EPOETIN ALFA [Concomitant]
  17. RIBAVIRIN [Suspect]
     Indication: HEPATITIS C
     Dosage: (600 MG BID (180 ?G ORAL), (600 MG ORAL), (800 MG ORAL)
     Route: 048
     Dates: start: 20100717, end: 20101216
  18. RIBAVIRIN [Suspect]
     Indication: HEPATITIS C
     Dosage: (600 MG BID (180 ?G ORAL), (600 MG ORAL), (800 MG ORAL)
     Route: 048
     Dates: start: 20100702, end: 20100716
  19. RIBAVIRIN [Suspect]
     Indication: HEPATITIS C
     Dosage: (600 MG BID (180 ?G ORAL), (600 MG ORAL), (800 MG ORAL)
     Route: 048
     Dates: start: 20100617, end: 20100701
  20. ZOLPIDEM TARTRATE [Concomitant]
  21. NEBIVOLOL HCL [Concomitant]

REACTIONS (1)
  - ANAEMIA [None]
